FAERS Safety Report 8495343-9 (Version None)
Quarter: 2012Q3

REPORT INFORMATION
  Report Type: 
  Country: None (occurrence: None)
  Receive Date: 20120709
  Receipt Date: 20120703
  Transmission Date: 20120928
  Serious: Yes (Hospitalization)
  Sender: FDA-Public Use
  Company Number: US-BAYER-2012-040760

PATIENT
  Age: 23 Year
  Sex: Female
  Weight: 92.971 kg

DRUGS (30)
  1. VICODIN [Concomitant]
     Indication: PAIN
     Dosage: UNK UNK, Q4HR
  2. YASMIN [Suspect]
     Dosage: UNK
  3. ATIVAN [Concomitant]
     Dosage: 0.5 MG, BID
     Route: 042
  4. DILAUDID [Concomitant]
     Dosage: 0.5 MG, UNK
  5. AMOXICILLIN [Concomitant]
     Dosage: 8 MG, BID
  6. NAPROSYN [Concomitant]
  7. RELPAX [Concomitant]
     Indication: MIGRAINE
     Dosage: 40 MG, UNK
  8. DEXTROAMPHETAMINE [Concomitant]
     Dosage: 30 MG, OM
  9. SUMATRIPTAN [Concomitant]
     Indication: MIGRAINE
     Dosage: 100 MG, PRN
  10. ACETAMINOPHEN [Concomitant]
     Dosage: 650 MG, UNK
  11. PERCOCET [Concomitant]
     Dosage: 5-325 MG
  12. MECLIZINE [Concomitant]
     Dosage: 12.5 MG, BID 1-2 TABLETS AS NEEDED
  13. BUTALBITAL ACETAMINOPHEN AND CAFFEINE [Concomitant]
     Indication: MIGRAINE
     Dosage: UNK UNK, TID 1-2 TABLETS AS NEEDED
  14. SEASONALE [Concomitant]
  15. FLEXERIL [Concomitant]
     Dosage: 10 MG, TID AS NEEDED
  16. IBUPROFEN [Concomitant]
     Dosage: 400 MG, TID
  17. ZANAFLEX [Concomitant]
     Indication: MIGRAINE
     Dosage: 4 MG, TID
  18. BENADRYL [Concomitant]
     Dosage: 25 MG, UNK
     Route: 042
  19. DILAUDID [Concomitant]
     Dosage: 1 MG, UNK
     Route: 042
  20. ESTRADIOL [Concomitant]
  21. PROZAC [Concomitant]
     Dosage: 40 MG, QD
  22. FLU VACCINATION [Concomitant]
  23. DROSPIRENONE AND ETHINYL ESTRADIOL [Suspect]
  24. TORADOL [Concomitant]
     Dosage: 30 MG, UNK
     Route: 042
  25. YAZ [Suspect]
  26. ADDERALL 5 [Concomitant]
  27. ZONEGRAN [Concomitant]
     Dosage: 25 MG, QD
  28. ZOFRAN [Concomitant]
     Dosage: 4 MG, UNK
     Route: 042
  29. REGLAN [Concomitant]
     Dosage: 10 MG, UNK
     Route: 042
  30. MOTRIN [Concomitant]
     Indication: PAIN
     Dosage: 800 MG, TID

REACTIONS (2)
  - DEEP VEIN THROMBOSIS [None]
  - PULMONARY EMBOLISM [None]
